FAERS Safety Report 4850661-8 (Version None)
Quarter: 2005Q4

REPORT INFORMATION
  Report Type: 
  Country: None (occurrence: None)
  Receive Date: 20051212
  Receipt Date: 20050726
  Transmission Date: 20060501
  Serious: No
  Sender: FDA-Public Use
  Company Number: US-BRISTOL-MYERS SQUIBB COMPANY-13055819

PATIENT
  Sex: Female
  Weight: 57 kg

DRUGS (2)
  1. QUESTRAN [Suspect]
  2. LIPITOR [Suspect]

REACTIONS (1)
  - MUSCULAR WEAKNESS [None]
